FAERS Safety Report 7131268-9 (Version None)
Quarter: 2010Q4

REPORT INFORMATION
  Report Type: 
  Country: None (occurrence: None)
  Receive Date: 20101124
  Receipt Date: 20101124
  Transmission Date: 20110411
  Serious: Yes (Other)
  Sender: FDA-Public Use
  Company Number: None

PATIENT
  Age: 42 Year
  Sex: Female

DRUGS (1)
  1. BREVITAL SODIUM [Suspect]
     Dosage: 200 MG 3 TIMES/WEEK IV BOLUS
     Route: 040
     Dates: start: 20100122, end: 20101119

REACTIONS (1)
  - DRUG INEFFECTIVE [None]
